FAERS Safety Report 21980721 (Version 1)
Quarter: 2023Q1

REPORT INFORMATION
  Report Type: Spontaneous
  Country: FR (occurrence: FR)
  Receive Date: 20230211
  Receipt Date: 20230211
  Transmission Date: 20230417
  Serious: Yes (Hospitalization)
  Sender: FDA-Public Use
  Company Number: FR-AFSSAPS-SE2023000058

PATIENT
  Age: 25 Year
  Sex: Male
  Weight: 85 kg

DRUGS (2)
  1. ACETAMINOPHEN [Suspect]
     Active Substance: ACETAMINOPHEN
     Indication: Toxicity to various agents
     Dosage: 19 GRAM, 1 TOTAL
     Route: 048
     Dates: start: 20201223, end: 20201223
  2. ATARAX [Suspect]
     Active Substance: HYDROXYZINE HYDROCHLORIDE
     Indication: Toxicity to various agents
     Dosage: 3.25 GRAM, 1 TOTAL
     Route: 048
     Dates: start: 20201223, end: 20201223

REACTIONS (2)
  - Analgesic drug level increased [Recovered/Resolved]
  - Intentional overdose [Recovered/Resolved]

NARRATIVE: CASE EVENT DATE: 20201223
